FAERS Safety Report 21621823 (Version 3)
Quarter: 2023Q1

REPORT INFORMATION
  Report Type: Report from Study
  Country: US (occurrence: US)
  Receive Date: 20221121
  Receipt Date: 20230103
  Transmission Date: 20230418
  Serious: No
  Sender: FDA-Public Use
  Company Number: US-ABBVIE-4158503

PATIENT
  Sex: Male

DRUGS (1)
  1. HUMIRA [Suspect]
     Active Substance: ADALIMUMAB
     Indication: Colitis ulcerative
     Dosage: CITRATE FREE. FORM STRENGTH: 40 MG
     Route: 058

REACTIONS (4)
  - Colitis ulcerative [Unknown]
  - Pain [Unknown]
  - Injection site pain [Unknown]
  - Weight increased [Unknown]
